FAERS Safety Report 6852949-8 (Version None)
Quarter: 2010Q3

REPORT INFORMATION
  Report Type: 
  Country: None (occurrence: None)
  Receive Date: 20100717
  Receipt Date: 20071123
  Transmission Date: 20110219
  Serious: No
  Sender: FDA-Public Use
  Company Number: US-PFIZER INC-2007101007

PATIENT
  Sex: Female
  Weight: 62.272 kg

DRUGS (2)
  1. CHANTIX [Suspect]
     Dates: start: 20071117, end: 20071123
  2. DEPO-PROVERA [Concomitant]

REACTIONS (3)
  - MOOD SWINGS [None]
  - NIGHTMARE [None]
  - SOMNOLENCE [None]
